FAERS Safety Report 5295494-6 (Version None)
Quarter: 2007Q2

REPORT INFORMATION
  Report Type: 
  Country: None (occurrence: None)
  Receive Date: 20070406
  Receipt Date: 20070327
  Transmission Date: 20071010
  Serious: Yes (Other)
  Sender: FDA-Public Use
  Company Number: 237848

PATIENT
  Age: 61 Year
  Sex: Female

DRUGS (7)
  1. HERCEPTIN [Suspect]
     Indication: BREAST CANCER
     Dosage: 6 MG/KG, Q3W, INTRAVENOUS
     Route: 042
     Dates: start: 20061128
  2. PACLITAXEL [Concomitant]
  3. ATENOLOL [Concomitant]
  4. HYDROCHLOROTHIAZIDE [Concomitant]
  5. VENLAFAXINE HCL [Concomitant]
  6. ATIVAN [Concomitant]
  7. TYLENOL (CAPLET) [Concomitant]

REACTIONS (2)
  - PNEUMONITIS [None]
  - PULMONARY EMBOLISM [None]
